FAERS Safety Report 4335299-3 (Version None)
Quarter: 2004Q2

REPORT INFORMATION
  Report Type: 
  Country: None (occurrence: None)
  Receive Date: 20040408
  Receipt Date: 20040408
  Transmission Date: 20050107
  Serious: Yes (Hospitalization)
  Sender: FDA-Public Use
  Company Number: None

PATIENT
  Sex: Male

DRUGS (8)
  1. BENAZEPRIL / AMLODIPINE [Suspect]
     Indication: HYPERTENSION
     Dosage: 10MG/ 5MG PO Q PM
     Route: 048
  2. GEMFIBRIZOL INH [Concomitant]
  3. VIT B6 [Concomitant]
  4. VALPROIC ACID [Concomitant]
  5. M.V.I. [Concomitant]
  6. THIAMINE [Concomitant]
  7. CLOZARIL [Concomitant]
  8. BENZATROPINE [Concomitant]

REACTIONS (4)
  - DROOLING [None]
  - DYSPNOEA [None]
  - SWOLLEN TONGUE [None]
  - TONGUE DISORDER [None]
